FAERS Safety Report 16346666 (Version 1)
Quarter: 2019Q2

REPORT INFORMATION
  Report Type: Report from Study
  Country: None (occurrence: BR)
  Receive Date: 20190523
  Receipt Date: 20190523
  Transmission Date: 20190711
  Serious: Yes (Other)
  Sender: FDA-Public Use
  Company Number: BR-ABBVIE-19K-020-2788223-00

PATIENT
  Sex: Male
  Weight: 97 kg

DRUGS (4)
  1. RANITIDINE. [Suspect]
     Active Substance: RANITIDINE
     Indication: PRODUCT USED FOR UNKNOWN INDICATION
     Route: 065
  2. MESALAZINE [Concomitant]
     Active Substance: MESALAMINE
     Indication: INFLAMMATION
  3. HUMIRA [Suspect]
     Active Substance: ADALIMUMAB
     Indication: CROHN^S DISEASE
     Route: 060
     Dates: start: 20130101
  4. BUSCOPAN [Suspect]
     Active Substance: BUTYLSCOPOLAMINE BROMIDE
     Indication: PAIN
     Route: 065

REACTIONS (6)
  - Overdose [Unknown]
  - Crohn^s disease [Recovering/Resolving]
  - Lactose intolerance [Unknown]
  - Gastrointestinal wall thickening [Recovering/Resolving]
  - Red blood cell sedimentation rate increased [Recovering/Resolving]
  - Malaise [Unknown]

NARRATIVE: CASE EVENT DATE: 20190508
